FAERS Safety Report 20219050 (Version 3)
Quarter: 2022Q1

REPORT INFORMATION
  Report Type: Report from Study
  Country: FR (occurrence: FR)
  Receive Date: 20211222
  Receipt Date: 20220131
  Transmission Date: 20220423
  Serious: Yes (Death, Hospitalization, Other)
  Sender: FDA-Public Use
  Company Number: FR-BRISTOL-MYERS SQUIBB COMPANY-BMS-2020-047472

PATIENT
  Age: 69 Year
  Sex: Male

DRUGS (1)
  1. NIVOLUMAB [Suspect]
     Active Substance: NIVOLUMAB
     Indication: Lip and/or oral cavity cancer
     Dosage: 480 MILLIGRAM, EVERY 15 DAYS
     Route: 042
     Dates: start: 20200115, end: 20200324

REACTIONS (6)
  - Malignant neoplasm progression [Fatal]
  - Respiratory failure [Fatal]
  - Pneumonia [Unknown]
  - Ascites [Unknown]
  - Anaemia [Unknown]
  - Off label use [Unknown]

NARRATIVE: CASE EVENT DATE: 20200430
